FAERS Safety Report 8175687-0 (Version None)
Quarter: 2012Q1

REPORT INFORMATION
  Report Type: 
  Country: None (occurrence: None)
  Receive Date: 20120301
  Receipt Date: 20120222
  Transmission Date: 20120608
  Serious: No
  Sender: FDA-Public Use
  Company Number: US-BIOGENIDEC-2012BI006955

PATIENT
  Sex: Female

DRUGS (1)
  1. AVONEX [Suspect]
     Indication: MULTIPLE SCLEROSIS
     Route: 030
     Dates: start: 20111003

REACTIONS (7)
  - CARDIAC DISORDER [None]
  - CHEST PAIN [None]
  - NASOPHARYNGITIS [None]
  - BLOOD CHOLESTEROL INCREASED [None]
  - DYSPHONIA [None]
  - RESPIRATORY TRACT CONGESTION [None]
  - COUGH [None]
